FAERS Safety Report 7825590-8 (Version None)
Quarter: 2011Q4

REPORT INFORMATION
  Report Type: 
  Country: None (occurrence: None)
  Receive Date: 20111019
  Receipt Date: 20111011
  Transmission Date: 20120403
  Serious: Yes (Other)
  Sender: FDA-Public Use
  Company Number: CA-CELGENEUS-028-21660-11101313

PATIENT

DRUGS (3)
  1. CISPLATIN [Suspect]
     Route: 065
  2. ABRAXANE [Suspect]
     Route: 041
  3. FLUOROURACIL [Suspect]
     Route: 065

REACTIONS (3)
  - NEUTROPENIA [None]
  - STOMATITIS [None]
  - DYSPHAGIA [None]
